FAERS Safety Report 7009108-8 (Version None)
Quarter: 2010Q3

REPORT INFORMATION
  Report Type: 
  Country: None (occurrence: None)
  Receive Date: 20100923
  Receipt Date: 20100902
  Transmission Date: 20110219
  Serious: Yes (Other)
  Sender: FDA-Public Use
  Company Number: CA-JNJFOC-20100902220

PATIENT
  Sex: Female
  Weight: 69 kg

DRUGS (1)
  1. REMICADE [Suspect]
     Indication: RHEUMATOID ARTHRITIS
     Route: 042

REACTIONS (6)
  - DIARRHOEA [None]
  - HERPES ZOSTER [None]
  - MOUTH ULCERATION [None]
  - SINUSITIS [None]
  - VOMITING [None]
  - WEIGHT DECREASED [None]
